FAERS Safety Report 8134330-7 (Version None)
Quarter: 2012Q1

REPORT INFORMATION
  Report Type: 
  Country: None (occurrence: None)
  Receive Date: 20120209
  Receipt Date: 20120126
  Transmission Date: 20120608
  Serious: Yes (Life-Threatening)
  Sender: FDA-Public Use
  Company Number: 216498

PATIENT
  Age: 60 Year
  Sex: Female
  Weight: 45 kg

DRUGS (2)
  1. INNOHEP [Suspect]
     Indication: DEEP VEIN THROMBOSIS
     Dosage: PREVENTIVE DOSAGE,SUBCUTANEOUS ; 10000 IU,SUBCUTANEOUS
     Route: 058
     Dates: start: 20111214, end: 20111230
  2. INNOHEP [Suspect]
     Indication: DEEP VEIN THROMBOSIS
     Dosage: PREVENTIVE DOSAGE,SUBCUTANEOUS ; 10000 IU,SUBCUTANEOUS
     Route: 058
     Dates: start: 20111230

REACTIONS (4)
  - UNDERDOSE [None]
  - OEDEMA PERIPHERAL [None]
  - INCORRECT DRUG ADMINISTRATION DURATION [None]
  - DRUG PRESCRIBING ERROR [None]
